FAERS Safety Report 15565053 (Version 1)
Quarter: 2018Q4

REPORT INFORMATION
  Report Type: Spontaneous
  Country: JP (occurrence: JP)
  Receive Date: 20181030
  Receipt Date: 20181030
  Transmission Date: 20190205
  Serious: Yes (Hospitalization)
  Sender: FDA-Public Use
  Company Number: JP-TAKEDA-2018TJP026747

PATIENT
  Age: 4 Decade
  Sex: Female

DRUGS (3)
  1. ROZEREM [Suspect]
     Active Substance: RAMELTEON
     Indication: SUICIDE ATTEMPT
     Dosage: UNK
     Route: 048
  2. BROTIZOLAM [Suspect]
     Active Substance: BROTIZOLAM
     Indication: SUICIDE ATTEMPT
     Dosage: UNK
     Route: 048
  3. ESTAZOLAM. [Suspect]
     Active Substance: ESTAZOLAM
     Indication: SUICIDE ATTEMPT
     Dosage: UNK
     Route: 048

REACTIONS (3)
  - Toxicity to various agents [Unknown]
  - Delirium [Recovering/Resolving]
  - Intentional overdose [Unknown]
